FAERS Safety Report 8600664 (Version 3)
Quarter: 2014Q1

REPORT INFORMATION
  Report Type: Spontaneous
  Country: FR (occurrence: FR)
  Receive Date: 20120606
  Receipt Date: 20140110
  Transmission Date: 20141002
  Serious: Yes (Death, Hospitalization)
  Sender: FDA-Public Use
  Company Number: PHHY2012FR047914

PATIENT
  Age: 55 Year
  Sex: Male

DRUGS (15)
  1. COTAREG [Suspect]
     Dosage: 1 DF (VALS 160 MG, HYDR 25 MG), QD
  2. FENOFIBRATE SANDOZ [Suspect]
     Dosage: 200 MG, QD (1 DF QD)
     Route: 048
  3. ALPRAZOLAM [Suspect]
     Dosage: 0.5 MG, QD
  4. THERALENE [Suspect]
     Dosage: 25 DRP, QD
  5. XATRAL [Suspect]
     Dosage: 10 MG, QD
  6. LERCANIDIPINE [Suspect]
     Dosage: 10 MG, QD
  7. GLUCOPHAGE [Suspect]
     Dosage: 500 MG, BID
  8. ESOMEPRAZOLE [Suspect]
     Dosage: 20 MG, QD
  9. ZOLPIDEM [Suspect]
     Dosage: 1 DF, QD
  10. DAONIL [Suspect]
     Dosage: 5 MG, BID
  11. VENLAFAXINE [Suspect]
     Dosage: 150 MG, QD
  12. QUETIAPINE [Suspect]
     Dosage: 50 MG, QD
     Dates: start: 20120416
  13. OLANZAPINE [Suspect]
     Dates: start: 200603
  14. OLANZAPINE [Suspect]
     Dosage: 5 MG, QD
     Dates: start: 20120417
  15. ZYPREXA [Concomitant]
     Dates: end: 20120416

REACTIONS (3)
  - Sudden death [Fatal]
  - Depression [Unknown]
  - Vomiting [Unknown]
